FAERS Safety Report 4326307-4 (Version None)
Quarter: 2004Q1

REPORT INFORMATION
  Report Type: 
  Country: None (occurrence: None)
  Receive Date: 20040325
  Receipt Date: 20031112
  Transmission Date: 20041129
  Serious: No
  Sender: FDA-Public Use
  Company Number: US055247

PATIENT
  Age: 62 Year
  Sex: Female
  Weight: 61.3 kg

DRUGS (6)
  1. NEULASTA [Suspect]
     Indication: CHEMOTHERAPY
     Dosage: 6 MG, AFTER CHEMO, SC
     Route: 058
     Dates: start: 20031115, end: 20031115
  2. CYCLOPHOSPHAMIDE [Concomitant]
  3. DOXORUBICIN HYDROCHLORIDE [Concomitant]
  4. GRANISETRON HCL [Concomitant]
  5. DEXAMETHASONE [Concomitant]
  6. NEUPOGEN [Concomitant]

REACTIONS (1)
  - DRUG INEFFECTIVE [None]
